FAERS Safety Report 15205921 (Version 1)
Quarter: 2018Q3

REPORT INFORMATION
  Report Type: Spontaneous
  Country: US (occurrence: US)
  Receive Date: 20180727
  Receipt Date: 20180727
  Transmission Date: 20181010
  Serious: No
  Sender: FDA-Public Use
  Company Number: US-BIOGEN-2018BI00613160

PATIENT
  Sex: Female

DRUGS (1)
  1. PLEGRIDY [Suspect]
     Active Substance: PEGINTERFERON BETA-1A
     Indication: MULTIPLE SCLEROSIS
     Route: 058
     Dates: start: 20180409

REACTIONS (14)
  - Injection site erythema [Unknown]
  - Tremor [Unknown]
  - Asthenia [Unknown]
  - Multiple sclerosis [Unknown]
  - Injection site pain [Unknown]
  - Injection site reaction [Unknown]
  - Aphasia [Unknown]
  - Bradyphrenia [Unknown]
  - Pyrexia [Unknown]
  - Influenza like illness [Unknown]
  - Myalgia [Unknown]
  - Feeling hot [Unknown]
  - Headache [Unknown]
  - Chills [Unknown]
